FAERS Safety Report 7684252-0 (Version None)
Quarter: 2011Q3

REPORT INFORMATION
  Report Type: 
  Country: None (occurrence: None)
  Receive Date: 20110815
  Receipt Date: 20110804
  Transmission Date: 20111222
  Serious: Yes (Death)
  Sender: FDA-Public Use
  Company Number: GB-AMGEN-FRASP2011040157

PATIENT
  Age: 80 Year
  Sex: Female

DRUGS (8)
  1. MOXONIDINE [Concomitant]
     Dosage: UNK
     Dates: start: 20050125
  2. DILTIAZEM [Concomitant]
     Dosage: UNK
     Dates: start: 20050808
  3. URAPIDIL [Concomitant]
     Dosage: UNK
     Dates: start: 20050709
  4. RAMIPRIL [Concomitant]
     Dosage: UNK
     Dates: start: 20050920
  5. IRBESARTAN [Concomitant]
     Dosage: UNK
     Dates: start: 20020129
  6. DARBEPOETIN ALFA [Suspect]
     Indication: RENAL FAILURE CHRONIC
     Dosage: 38 UNIT, Q2WK
     Route: 058
  7. ASPIRIN [Concomitant]
     Dosage: UNK
     Dates: start: 20041003
  8. FUROSEMIDE [Concomitant]
     Dosage: UNK

REACTIONS (1)
  - DEATH [None]
